FAERS Safety Report 7626569-1 (Version None)
Quarter: 2011Q3

REPORT INFORMATION
  Report Type: 
  Country: None (occurrence: None)
  Receive Date: 20110714
  Receipt Date: 20110701
  Transmission Date: 20111222
  Serious: Yes (Death)
  Sender: FDA-Public Use
  Company Number: UTC-008337

PATIENT
  Age: 75 Year
  Sex: Female
  Weight: 67.6 kg

DRUGS (3)
  1. REVATIO [Concomitant]
  2. REMODULIN [Suspect]
     Indication: COR PULMONALE CHRONIC
     Dosage: 32.544 UG/KG (0.0226 UG/KG, 1 IN 1 MIN),SUBCUTANEOUS
     Route: 058
     Dates: start: 20100416
  3. DIURETICS (DIURETICS) [Concomitant]

REACTIONS (1)
  - DEATH [None]
